FAERS Safety Report 15543150 (Version 1)
Quarter: 2018Q4

REPORT INFORMATION
  Report Type: Spontaneous
  Country: ZA (occurrence: ZA)
  Receive Date: 20181023
  Receipt Date: 20181023
  Transmission Date: 20190205
  Serious: Yes (Hospitalization)
  Sender: FDA-Public Use
  Company Number: ZA-PFIZER INC-2018425277

PATIENT
  Age: 66 Year
  Sex: Female

DRUGS (6)
  1. CLOPIWIN [Suspect]
     Active Substance: CLOPIDOGREL BISULFATE
     Dosage: 75 MG, UNK
  2. ASPAVOR [Suspect]
     Active Substance: ATORVASTATIN
     Dosage: 40 MG, UNK
  3. LANCAP [Suspect]
     Active Substance: LANSOPRAZOLE
     Dosage: 30 MG, UNK
  4. ECOTRIN [Suspect]
     Active Substance: ASPIRIN
     Dosage: 81 MG, UNK
  5. CARLOC [Suspect]
     Active Substance: CARVEDILOL
     Dosage: 6.25 MG, UNK
  6. ESTROFEM (ESTRADIOL) [Suspect]
     Active Substance: ESTRADIOL
     Dosage: 1 MG, UNK

REACTIONS (1)
  - Myocardial infarction [Unknown]
